FAERS Safety Report 4293162-0 (Version None)
Quarter: 2004Q1

REPORT INFORMATION
  Report Type: 
  Country: None (occurrence: None)
  Receive Date: 20040105
  Receipt Date: 20031223
  Transmission Date: 20041129
  Serious: Yes (Other)
  Sender: FDA-Public Use
  Company Number: 200311442BVD

PATIENT
  Sex: Female

DRUGS (1)
  1. GAMIMUNE N 10% [Suspect]
     Dosage: INTRAVENOUS
     Route: 042

REACTIONS (1)
  - SHOCK [None]
